FAERS Safety Report 8114447-3 (Version None)
Quarter: 2012Q1

REPORT INFORMATION
  Report Type: 
  Country: None (occurrence: None)
  Receive Date: 20120206
  Receipt Date: 20120130
  Transmission Date: 20120608
  Serious: No
  Sender: FDA-Public Use
  Company Number: US-BIOGENIDEC-2012BI003875

PATIENT
  Sex: Female

DRUGS (1)
  1. TYSABRI [Suspect]
     Indication: MULTIPLE SCLEROSIS
     Route: 042
     Dates: start: 20070205

REACTIONS (7)
  - FALL [None]
  - HEADACHE [None]
  - VAGINAL DISCHARGE [None]
  - BALANCE DISORDER [None]
  - SINUS DISORDER [None]
  - FACIAL BONES FRACTURE [None]
  - COGNITIVE DISORDER [None]
